FAERS Safety Report 9743239 (Version 2)
Quarter: 2015Q3

REPORT INFORMATION
  Report Type: Spontaneous
  Country: US (occurrence: US)
  Receive Date: 20131210
  Receipt Date: 20150804
  Transmission Date: 20151125
  Serious: No
  Sender: FDA-Public Use
  Company Number: US-GILEAD-2009-0025147

PATIENT
  Age: 65 Year
  Sex: Male
  Weight: 106.59 kg

DRUGS (10)
  1. HYDROCHLOROTHIAZIDE/OLMESARTAN MEDOXOMIL [Concomitant]
  2. LITHIUM CARB [Concomitant]
     Active Substance: LITHIUM CARBONATE
  3. HYTRIN [Concomitant]
     Active Substance: TERAZOSIN HYDROCHLORIDE
  4. NASONEX [Concomitant]
     Active Substance: MOMETASONE FUROATE
  5. LETAIRIS [Suspect]
     Active Substance: AMBRISENTAN
     Indication: PULMONARY ARTERIAL HYPERTENSION
     Route: 048
     Dates: start: 20090417
  6. ALLOPURINOL. [Concomitant]
     Active Substance: ALLOPURINOL
  7. NEXIUM [Concomitant]
     Active Substance: ESOMEPRAZOLE MAGNESIUM
  8. LEVAQUIN [Concomitant]
     Active Substance: LEVOFLOXACIN
  9. LOVAZA [Concomitant]
     Active Substance: OMEGA-3-ACID ETHYL ESTERS
  10. FENOFIBRATE. [Concomitant]
     Active Substance: FENOFIBRATE

REACTIONS (1)
  - Nasal congestion [Unknown]
